FAERS Safety Report 10032459 (Version 2)
Quarter: 2014Q2

REPORT INFORMATION
  Report Type: Report from Study
  Country: AU (occurrence: AU)
  Receive Date: 20140324
  Receipt Date: 20140417
  Transmission Date: 20141212
  Serious: Yes (Death)
  Sender: FDA-Public Use
  Company Number: AU-ASTRAZENECA-2014SE19889

PATIENT
  Age: 22241 Day
  Sex: Male
  Weight: 85.3 kg

DRUGS (25)
  1. PROCHLORPERAZINE [Concomitant]
     Indication: NAUSEA
  2. RISPERDAL QUICKLET [Concomitant]
  3. SLOW K [Concomitant]
     Dosage: 2 DF IN THE MORNING WITH MEALS
  4. SOMAC [Concomitant]
  5. TEMAZE [Concomitant]
     Dosage: 1-2 BEFORE BED PRN
  6. ZOLADEX [Suspect]
     Indication: PROSTATE CANCER METASTATIC
     Route: 058
     Dates: start: 20010516, end: 20020325
  7. ZOLADEX [Suspect]
     Indication: PROSTATE CANCER METASTATIC
     Route: 058
     Dates: start: 20030124, end: 20030806
  8. ZOLADEX [Suspect]
     Indication: PROSTATE CANCER METASTATIC
     Route: 058
     Dates: start: 20040517, end: 20131014
  9. AMITRIPTYLINE [Concomitant]
  10. BISOPROLOL [Concomitant]
  11. CLONAZEPAM [Concomitant]
     Dosage: 2 TWICE A DAY AND 4 HOURLY PRN
  12. COLOXYL WITH SENNA [Concomitant]
     Dosage: 50 MG, 8 MG, 2 BID
  13. FUROSEMIDE [Concomitant]
  14. IBUPROFEN [Concomitant]
     Dosage: 1 THREE TIMES A DAY WITH MEALS
  15. KAPANOL [Concomitant]
  16. MAGMIN [Concomitant]
  17. METHADONE [Concomitant]
  18. MORPHINE [Concomitant]
     Indication: BREAKTHROUGH PAIN
     Dosage: 5 MG/ML, 2 MLS PRN EVERY 2-3 HRS
  19. MOVICOL [Concomitant]
     Indication: CONSTIPATION
     Dosage: 12.125 G PER SACHET, 1-3 DAILY PRN
  20. NIRTOLINGUAL PUMPSPRAY [Concomitant]
     Indication: CHEST PAIN
     Dosage: 400 MCG/DOSE, 1-2 SPRAYS PRN
  21. ONDANSETRON [Concomitant]
     Indication: NAUSEA
     Dosage: 1-2 TWICE A DAY PRN
  22. ONDANSETRON [Concomitant]
     Indication: VOMITING
     Dosage: 1-2 TWICE A DAY PRN
  23. PARACETAMOL [Concomitant]
  24. PRAZOSIN [Concomitant]
  25. PREDNISOLONE [Concomitant]
     Dosage: 1 DF IN THE MORNING WITH MEALS

REACTIONS (3)
  - Malignant neoplasm progression [Fatal]
  - Asthenia [Not Recovered/Not Resolved]
  - Hot flush [Not Recovered/Not Resolved]
